FAERS Safety Report 11109129 (Version 1)
Quarter: 2015Q2

REPORT INFORMATION
  Report Type: Spontaneous
  Country: GB (occurrence: GB)
  Receive Date: 20150513
  Receipt Date: 20150513
  Transmission Date: 20150821
  Serious: Yes (Other)
  Sender: FDA-Public Use
  Company Number: GB-JNJFOC-20150503912

PATIENT
  Age: 8 Week
  Sex: Female

DRUGS (2)
  1. CALPOL [Suspect]
     Active Substance: ACETAMINOPHEN
     Route: 065
  2. CALPOL [Suspect]
     Active Substance: ACETAMINOPHEN
     Indication: IMMUNISATION
     Route: 065
     Dates: start: 20150505, end: 20150505

REACTIONS (3)
  - Respiratory arrest [Unknown]
  - Syringe issue [Unknown]
  - Choking [Unknown]

NARRATIVE: CASE EVENT DATE: 20150505
